FAERS Safety Report 4332283-0 (Version None)
Quarter: 2004Q2

REPORT INFORMATION
  Report Type: 
  Country: None (occurrence: None)
  Receive Date: 20040405
  Receipt Date: 19940329
  Transmission Date: 20050107
  Serious: Yes (Hospitalization)
  Sender: FDA-Public Use
  Company Number: IT-MERCK-94038108

PATIENT
  Age: 57 Year
  Sex: Male

DRUGS (1)
  1. PROSCAR [Suspect]
     Indication: BENIGN PROSTATIC HYPERPLASIA
     Route: 048
     Dates: start: 19931201, end: 19940101

REACTIONS (5)
  - CATARACT [None]
  - HAEMATURIA [None]
  - PHOTOPHOBIA [None]
  - RETINAL DEGENERATION [None]
  - TESTIS CANCER [None]
